FAERS Safety Report 9915141 (Version 1)
Quarter: 2014Q1

REPORT INFORMATION
  Report Type: Spontaneous
  Country: FR (occurrence: FR)
  Receive Date: 20140220
  Receipt Date: 20140220
  Transmission Date: 20141002
  Serious: Yes (Death, Hospitalization, Other)
  Sender: FDA-Public Use
  Company Number: FR-ELI_LILLY_AND_COMPANY-FR201402005015

PATIENT
  Age: 72 Year
  Sex: Male

DRUGS (10)
  1. HUMALOG LISPRO [Suspect]
     Indication: PRODUCT USED FOR UNKNOWN INDICATION
     Dosage: 6 IU, QD
     Route: 058
  2. SOTALOL [Suspect]
     Indication: PRODUCT USED FOR UNKNOWN INDICATION
     Dosage: 80 MG, QD
     Route: 048
  3. KARDEGIC [Suspect]
     Indication: PRODUCT USED FOR UNKNOWN INDICATION
     Dosage: 75 MG, QD
     Route: 048
  4. LEVEMIR [Suspect]
     Indication: PRODUCT USED FOR UNKNOWN INDICATION
     Dosage: 10 IU, EACH EVENING
     Route: 058
  5. ALLOPURINOL [Concomitant]
     Dosage: 200 MG, QD
  6. PRAVASTATIN SODIUM [Concomitant]
     Dosage: 20 MG, QD
  7. ATACAND [Concomitant]
     Dosage: 8 MG, QD
  8. AMLOR [Concomitant]
     Dosage: 10 MG, QD
  9. UVEDOSE [Concomitant]
     Dosage: 100000 IU, UNK
     Route: 048
  10. KAYEXALATE [Concomitant]
     Dosage: UNK, QD

REACTIONS (4)
  - Renal failure chronic [Fatal]
  - Hypoglycaemic unconsciousness [Recovered/Resolved]
  - Fall [Recovered/Resolved]
  - Incorrect dose administered [Recovered/Resolved]
